FAERS Safety Report 18585684 (Version 1)
Quarter: 2020Q4

REPORT INFORMATION
  Report Type: Spontaneous
  Country: US (occurrence: US)
  Receive Date: 20201204
  Receipt Date: 20201204
  Transmission Date: 20210114
  Serious: Yes (Death)
  Sender: FDA-Public Use
  Company Number: None

PATIENT
  Sex: Male

DRUGS (19)
  1. AZATHIOPRINE. [Concomitant]
     Active Substance: AZATHIOPRINE
  2. OMEGA-3 ACIDS [Concomitant]
     Active Substance: OMEGA-3 FATTY ACIDS
  3. SUMATRIPTAN. [Concomitant]
     Active Substance: SUMATRIPTAN
  4. TYLENOL [Concomitant]
     Active Substance: ACETAMINOPHEN
  5. DULOXETINE. [Concomitant]
     Active Substance: DULOXETINE
  6. ORENCIA [Concomitant]
     Active Substance: ABATACEPT
  7. AMLODIPINE [Concomitant]
     Active Substance: AMLODIPINE BESYLATE
  8. FEFLUNOMIDE [Concomitant]
  9. MEDROL [Concomitant]
     Active Substance: METHYLPREDNISOLONE
  10. OMEPRAZOLE. [Concomitant]
     Active Substance: OMEPRAZOLE
  11. ASPIRIN. [Concomitant]
     Active Substance: ASPIRIN
  12. LEVOTHYROXIN [Concomitant]
     Active Substance: LEVOTHYROXINE
  13. NO DRUG NAME [Concomitant]
  14. XELJANZ [Suspect]
     Active Substance: TOFACITINIB CITRATE
     Indication: RHEUMATOID ARTHRITIS
     Route: 048
     Dates: start: 20180112
  15. CLOPIDOGREL [Concomitant]
     Active Substance: CLOPIDOGREL BISULFATE
  16. HYDROCO [Concomitant]
  17. PLAQUENIL [Concomitant]
     Active Substance: HYDROXYCHLOROQUINE SULFATE
  18. METFORMIN [Concomitant]
     Active Substance: METFORMIN HYDROCHLORIDE
  19. VALIUM [Concomitant]
     Active Substance: DIAZEPAM

REACTIONS (1)
  - Death [None]
